FAERS Safety Report 4843501-4 (Version None)
Quarter: 2005Q4

REPORT INFORMATION
  Report Type: 
  Country: None (occurrence: None)
  Receive Date: 20051202
  Receipt Date: 20051122
  Transmission Date: 20060501
  Serious: Yes (Hospitalization)
  Sender: FDA-Public Use
  Company Number: PHBS2005NL17144

PATIENT
  Age: 79 Year
  Sex: Female

DRUGS (3)
  1. EXELON [Suspect]
     Indication: DEMENTIA ALZHEIMER'S TYPE
     Dosage: 1.5 MG, BID
     Route: 048
     Dates: start: 20050905, end: 20051021
  2. PANZYTRAT [Concomitant]
     Dosage: 1 DF, TID
     Route: 048
     Dates: start: 20051003
  3. MOTILIUM [Concomitant]
     Dosage: 10 MG, TID
     Route: 048
     Dates: start: 20050907

REACTIONS (1)
  - ELECTROCARDIOGRAM ABNORMAL [None]
